FAERS Safety Report 25020007 (Version 5)
Quarter: 2025Q2

REPORT INFORMATION
  Report Type: Spontaneous
  Country: JP (occurrence: JP)
  Receive Date: 20250227
  Receipt Date: 20250410
  Transmission Date: 20250716
  Serious: Yes (Hospitalization, Other)
  Sender: MERCK SHARP AND DOHME
  Company Number: JP-MSD-M2025-03567

PATIENT
  Age: 90 Year
  Sex: Female
  Weight: 34.9 kg

DRUGS (4)
  1. LAGEVRIO [Suspect]
     Active Substance: MOLNUPIRAVIR
  2. LAGEVRIO [Suspect]
     Active Substance: MOLNUPIRAVIR
     Dosage: DOSE DESCRIPTION : 800 MILLIGRAM, QD, EVENING?DAILY DOSE : 800 MILLIGRAM?REGIMEN DOSE : 800  MILL...
     Route: 048
     Dates: start: 20250128, end: 20250128
  3. LAGEVRIO [Suspect]
     Active Substance: MOLNUPIRAVIR
     Dosage: DOSE DESCRIPTION : 800 MILLIGRAM, BID?DAILY DOSE : 1600 MILLIGRAM
     Route: 048
     Dates: start: 20250129
  4. LAGEVRIO [Suspect]
     Active Substance: MOLNUPIRAVIR
     Dosage: DOSE DESCRIPTION : 800 MILLIGRAM, QD, EVENING?DAILY DOSE : 800 MILLIGRAM?REGIMEN DOSE : 800  MILL...
     Route: 048
     Dates: start: 20250130

REACTIONS (7)
  - Gastrointestinal haemorrhage [Unknown]
  - Depressed level of consciousness [Unknown]
  - COVID-19 [Unknown]
  - Epistaxis [Recovered/Resolved]
  - Hiatus hernia [Unknown]
  - Shock [Unknown]
  - Pneumonia [Unknown]

NARRATIVE: CASE EVENT DATE: 20250101
